FAERS Safety Report 12684266 (Version 1)
Quarter: 2016Q3

REPORT INFORMATION
  Report Type: Spontaneous
  Country: GB (occurrence: GB)
  Receive Date: 20160825
  Receipt Date: 20160825
  Transmission Date: 20161109
  Serious: Yes (Death)
  Sender: FDA-Public Use
  Company Number: GB-009507513-1608GBR012433

PATIENT
  Age: 24 Year
  Sex: Male

DRUGS (1)
  1. MIRTAZAPINE. [Suspect]
     Active Substance: MIRTAZAPINE
     Indication: DEPRESSED MOOD
     Dosage: 30 MG, UNK
     Route: 048
     Dates: start: 20160620

REACTIONS (1)
  - Completed suicide [Fatal]
